FAERS Safety Report 7556291-1 (Version None)
Quarter: 2011Q2

REPORT INFORMATION
  Report Type: 
  Country: None (occurrence: None)
  Receive Date: 20110620
  Receipt Date: 20110615
  Transmission Date: 20111010
  Serious: No
  Sender: FDA-Public Use
  Company Number: US-PFIZER INC-2011131860

PATIENT
  Sex: Female
  Weight: 11 kg

DRUGS (1)
  1. GENOTROPIN [Suspect]
     Indication: GROWTH HORMONE DEFICIENCY
     Dosage: 0.6 MG, DAILY
     Route: 058
     Dates: start: 20110601, end: 20110614

REACTIONS (3)
  - NASAL CONGESTION [None]
  - URTICARIA [None]
  - BURNING SENSATION [None]
